FAERS Safety Report 22530411 (Version 9)
Quarter: 2023Q4

REPORT INFORMATION
  Report Type: Spontaneous
  Country: US (occurrence: US)
  Receive Date: 20230607
  Receipt Date: 20231222
  Transmission Date: 20240110
  Serious: Yes (Hospitalization)
  Sender: FDA-Public Use
  Company Number: US-PFIZER INC-PV202300098161

PATIENT
  Age: 68 Year
  Sex: Female
  Weight: 99.79 kg

DRUGS (6)
  1. IBRANCE [Suspect]
     Active Substance: PALBOCICLIB
     Indication: Breast cancer metastatic
     Dosage: 125 MG
     Dates: start: 20230410, end: 20230530
  2. IBRANCE [Suspect]
     Active Substance: PALBOCICLIB
     Indication: Neoplasm malignant
     Dosage: TAKES ONE 100 MG TABLET 3 TIMES PER WEEK , 3 WEEKS ON AND 1 WEEK OFF
     Route: 048
     Dates: start: 20230531
  3. IBRANCE [Suspect]
     Active Substance: PALBOCICLIB
     Dosage: 100 MG, CYCLIC (100 MG ORALLY DAILY. TAKE ON DAYS 1-21 OF A 28 DAY CYCLE. TAKE WITH OR WITHOUT FOOD)
     Route: 048
  4. IBRANCE [Suspect]
     Active Substance: PALBOCICLIB
     Dosage: 100MG TABLET ONCE A DAY FOR 21 DAYS THEN OFF FOR 7 DAYS.
  5. FASLODEX [Suspect]
     Active Substance: FULVESTRANT
     Indication: Breast cancer metastatic
     Dosage: MONTHLY FASLODEX X 2. GV AND FASLODEX IN 3 MONTHS
  6. FASLODEX [Suspect]
     Active Substance: FULVESTRANT
     Dosage: UNK (ONCE EVERY 28 DAYS)

REACTIONS (5)
  - Rash macular [Recovered/Resolved]
  - Skin haemorrhage [Recovered/Resolved]
  - Anaemia [Unknown]
  - Memory impairment [Unknown]
  - Off label use [Unknown]

NARRATIVE: CASE EVENT DATE: 20230531
